FAERS Safety Report 6399611-6 (Version None)
Quarter: 2009Q4

REPORT INFORMATION
  Report Type: 
  Country: None (occurrence: None)
  Receive Date: 20091014
  Receipt Date: 20091007
  Transmission Date: 20100525
  Serious: No
  Sender: FDA-Public Use
  Company Number: US-DENTSPLY-2009-0080-EUR

PATIENT
  Age: 35 Year
  Sex: Female

DRUGS (4)
  1. LIDOCAINE [Suspect]
  2. BARBITURATES [Concomitant]
  3. PHENYLPROPANOLAMINE [Concomitant]
  4. PHENETHYLAMINE [Concomitant]

REACTIONS (2)
  - CONVULSION [None]
  - OVERDOSE [None]
